FAERS Safety Report 5436015-4 (Version None)
Quarter: 2007Q3

REPORT INFORMATION
  Report Type: 
  Country: None (occurrence: None)
  Receive Date: 20070831
  Receipt Date: 20070824
  Transmission Date: 20080115
  Serious: Yes (Hospitalization)
  Sender: FDA-Public Use
  Company Number: B0458523A

PATIENT
  Age: 55 Year
  Sex: Female
  Weight: 109 kg

DRUGS (9)
  1. ARIXTRA [Suspect]
     Indication: THROMBOPHLEBITIS SUPERFICIAL
     Dosage: 10MG PER DAY
     Route: 058
     Dates: start: 20070123, end: 20070206
  2. NICOTINE SUBSTITUTE [Concomitant]
     Dosage: 2MG PER DAY
     Route: 048
  3. NIQUITIN CQ CLEAR 21MG [Concomitant]
     Route: 062
  4. COMPRESSION STOCKINGS [Concomitant]
     Indication: THROMBOPHLEBITIS SUPERFICIAL
  5. CIPROFLOXACIN HCL [Concomitant]
     Indication: BRONCHIAL DISORDER
     Route: 048
     Dates: start: 20070126
  6. MEDROL [Concomitant]
     Indication: BRONCHIAL DISORDER
     Route: 048
     Dates: start: 20070201
  7. BRONCHODUAL [Concomitant]
     Indication: BRONCHIAL DISORDER
     Route: 055
     Dates: start: 20070201
  8. ACETYLCYSTEINE [Concomitant]
     Indication: BRONCHIAL DISORDER
     Route: 048
     Dates: start: 20070201
  9. SILOMAT [Concomitant]
     Indication: BRONCHIAL DISORDER
     Route: 048
     Dates: start: 20070201

REACTIONS (3)
  - ABDOMINAL PAIN [None]
  - MUSCLE HAEMORRHAGE [None]
  - OFF LABEL USE [None]
